FAERS Safety Report 4717742-0 (Version None)
Quarter: 2005Q3

REPORT INFORMATION
  Report Type: 
  Country: None (occurrence: None)
  Receive Date: 20050714
  Receipt Date: 20050114
  Transmission Date: 20060218
  Serious: No
  Sender: FDA-Public Use
  Company Number: 0030105

PATIENT

DRUGS (1)
  1. TINDAMAX [Suspect]
     Indication: GIARDIASIS
     Dosage: 2 G
     Dates: start: 20050101

REACTIONS (2)
  - HYPOAESTHESIA [None]
  - PARAESTHESIA [None]
